FAERS Safety Report 9016369 (Version 2)
Quarter: 2013Q2

REPORT INFORMATION
  Report Type: Spontaneous
  Country: AU (occurrence: AU)
  Receive Date: 20130116
  Receipt Date: 20130521
  Transmission Date: 20140414
  Serious: Yes (Death, Life-Threatening, Hospitalization)
  Sender: FDA-Public Use
  Company Number: AU-BRISTOL-MYERS SQUIBB COMPANY-17268590

PATIENT
  Sex: Female

DRUGS (1)
  1. HYDREA CAPS 500 MG [Suspect]
     Indication: ACUTE MYELOID LEUKAEMIA

REACTIONS (5)
  - Malignant neoplasm progression [Fatal]
  - Gastric infection [Unknown]
  - Ileus [Unknown]
  - Vomiting [Unknown]
  - Off label use [Unknown]
